FAERS Safety Report 10910936 (Version 1)
Quarter: 2015Q1

REPORT INFORMATION
  Report Type: Report from Study
  Country: JP (occurrence: JP)
  Receive Date: 20150312
  Receipt Date: 20150312
  Transmission Date: 20150721
  Serious: Yes (Other)
  Sender: FDA-Public Use
  Company Number: JP-EISAI MEDICAL RESEARCH-EC-2015-004840

PATIENT
  Age: 87 Year
  Sex: Female

DRUGS (7)
  1. ARICEPT [Suspect]
     Active Substance: DONEPEZIL HYDROCHLORIDE
     Indication: DEMENTIA ALZHEIMER^S TYPE
     Route: 048
     Dates: start: 20131224, end: 20131231
  2. GLACTIV [Concomitant]
     Active Substance: SITAGLIPTIN
  3. MAGMITT [Concomitant]
     Active Substance: MAGNESIUM OXIDE
  4. MERISLON [Concomitant]
     Active Substance: BETAHISTINE MESILATE
  5. AMARYL [Concomitant]
     Active Substance: GLIMEPIRIDE
  6. ADETPHOS [Concomitant]
     Active Substance: ADENOSINE TRIPHOSPHATE
  7. ARICEPT [Suspect]
     Active Substance: DONEPEZIL HYDROCHLORIDE
     Route: 048
     Dates: start: 20140122, end: 20140401

REACTIONS (2)
  - Atrial fibrillation [Not Recovered/Not Resolved]
  - Cardiac failure congestive [Recovered/Resolved]

NARRATIVE: CASE EVENT DATE: 20140401
